FAERS Safety Report 9017602 (Version 1)
Quarter: 2013Q1

REPORT INFORMATION
  Report Type: Spontaneous
  Country: GB (occurrence: GB)
  Receive Date: 20130117
  Receipt Date: 20130117
  Transmission Date: 20140127
  Serious: Yes (Life-Threatening, Hospitalization, Other)
  Sender: FDA-Public Use
  Company Number: GB-B.I. PHARMACEUTICALS,INC./RIDGEFIELD-2013-UK-00041UK

PATIENT
  Age: 69 Year
  Sex: Male
  Weight: 82 kg

DRUGS (2)
  1. PRADAXA [Suspect]
     Indication: THROMBOSIS PROPHYLAXIS
     Dosage: 220 MG
     Route: 048
     Dates: start: 20121204, end: 20121204
  2. CO-CODAMOL [Concomitant]

REACTIONS (12)
  - Respiratory depression [Not Recovered/Not Resolved]
  - Haemodynamic instability [Recovered/Resolved]
  - Agitation [Unknown]
  - Post procedural diarrhoea [Unknown]
  - Procedural vomiting [Unknown]
  - Procedural nausea [Unknown]
  - Haemoglobin decreased [Unknown]
  - Haematemesis [Recovered/Resolved]
  - Haematemesis [Recovered/Resolved]
  - Gastrointestinal ulcer haemorrhage [Not Recovered/Not Resolved]
  - Abdominal distension [Recovered/Resolved]
  - Abdominal pain upper [Unknown]
